FAERS Safety Report 18604405 (Version 1)
Quarter: 2020Q4

REPORT INFORMATION
  Report Type: Spontaneous
  Country: IR (occurrence: IR)
  Receive Date: 20201211
  Receipt Date: 20201211
  Transmission Date: 20210114
  Serious: Yes (Hospitalization, Other)
  Sender: FDA-Public Use
  Company Number: IR-STRIDES ARCOLAB LIMITED-2020SP015163

PATIENT
  Age: 21 Year
  Sex: Male

DRUGS (3)
  1. ZOLPIDEM [Suspect]
     Active Substance: ZOLPIDEM TARTRATE
     Indication: MENTAL DISORDER
     Dosage: 10 MILLIGRAM DAILY
     Route: 048
  2. ZOLPIDEM [Suspect]
     Active Substance: ZOLPIDEM TARTRATE
     Dosage: GRADUALLY INCREASED HIS DAILY ZOLPIDEM CONSUMPTION TO 70-80MG DAILY (SUPRA-THERAPEUTIC DOSE)
     Route: 065
  3. ZOLPIDEM [Suspect]
     Active Substance: ZOLPIDEM TARTRATE
     Dosage: UNK, RESTARTED, WAS TAPERED GRADUALLY OVER ONE WEEK
     Route: 065

REACTIONS (12)
  - Hyperhidrosis [Recovered/Resolved]
  - Drug abuse [Unknown]
  - Muscle spasms [Recovered/Resolved]
  - Intentional product use issue [Unknown]
  - Tachycardia [Recovered/Resolved]
  - Dystonia [Recovered/Resolved]
  - Immobile [Recovered/Resolved]
  - Drug dependence [Unknown]
  - Off label use [Unknown]
  - Psychomotor hyperactivity [Recovered/Resolved]
  - Agitation [Recovered/Resolved]
  - Withdrawal syndrome [Recovered/Resolved]
